FAERS Safety Report 5721320-4 (Version None)
Quarter: 2008Q2

REPORT INFORMATION
  Report Type: 
  Country: None (occurrence: None)
  Receive Date: 20080424
  Receipt Date: 20080416
  Transmission Date: 20081010
  Serious: Yes (Other)
  Sender: FDA-Public Use
  Company Number: GXKR2008AT03700

PATIENT
  Age: 19 Year
  Sex: Female

DRUGS (1)
  1. METFORMIN HCL [Suspect]
     Dosage: 25 DF, ONCE/SINGLE, ORAL
     Route: 048
     Dates: start: 20080127, end: 20080127

REACTIONS (4)
  - INTENTIONAL OVERDOSE [None]
  - NAUSEA [None]
  - VERTIGO [None]
  - VOMITING [None]
